FAERS Safety Report 24302610 (Version 2)
Quarter: 2024Q3

REPORT INFORMATION
  Report Type: Spontaneous
  Country: JP (occurrence: JP)
  Receive Date: 20240910
  Receipt Date: 20240920
  Transmission Date: 20241016
  Serious: Yes (Hospitalization)
  Sender: TEVA
  Company Number: JP-TEVA-VS-3239813

PATIENT
  Age: 23 Year
  Sex: Female

DRUGS (6)
  1. DIAZEPAM [Suspect]
     Active Substance: DIAZEPAM
     Indication: Suicide attempt
     Route: 065
  2. DROSPIRENONE [Concomitant]
     Active Substance: DROSPIRENONE
     Indication: Oral contraception
     Route: 048
  3. ETHINYL ESTRADIOL [Suspect]
     Active Substance: ETHINYL ESTRADIOL
     Indication: Oral contraception
     Route: 048
  4. MAGNESIUM OXIDE [Concomitant]
     Active Substance: MAGNESIUM OXIDE
     Indication: Product used for unknown indication
     Route: 065
  5. PAROXETINE [Suspect]
     Active Substance: PAROXETINE
     Indication: Obsessive-compulsive disorder
     Route: 065
  6. CAFFEINE [Suspect]
     Active Substance: CAFFEINE
     Indication: Suicide attempt
     Route: 048

REACTIONS (2)
  - Drug interaction [Unknown]
  - Intentional overdose [Unknown]
